FAERS Safety Report 5803594-4 (Version None)
Quarter: 2008Q3

REPORT INFORMATION
  Report Type: 
  Country: None (occurrence: None)
  Receive Date: 20080703
  Receipt Date: 20080625
  Transmission Date: 20090109
  Serious: Yes (Death, Other)
  Sender: FDA-Public Use
  Company Number: 2007-03954

PATIENT
  Age: 58 Year
  Sex: Male
  Weight: 47 kg

DRUGS (10)
  1. VELCADE [Suspect]
     Indication: MULTIPLE MYELOMA
     Dosage: 2.00 MG, INTRAVENOUS
     Route: 042
     Dates: start: 20071119, end: 20071122
  2. DEXAMETHASONE [Concomitant]
  3. DIFLUCAN [Concomitant]
  4. SULFAMETHOXAZOLE AND TRIMETHOPRIM [Concomitant]
  5. MUCOSTA (REBAMIPIDE) [Concomitant]
  6. MAGNESIUM OXIDE (MAGNESIUM OXIDE) [Concomitant]
  7. ZOLPIDEM TARTRATE [Concomitant]
  8. BONALON [Concomitant]
  9. CIPROFLOXACIN HCL [Concomitant]
  10. BFLUID [Concomitant]

REACTIONS (19)
  - BLOOD CREATININE INCREASED [None]
  - BLOOD LACTATE DEHYDROGENASE INCREASED [None]
  - BLOOD UREA INCREASED [None]
  - BLOOD URIC ACID INCREASED [None]
  - DIALYSIS [None]
  - DISEASE PROGRESSION [None]
  - DISSEMINATED INTRAVASCULAR COAGULATION [None]
  - DRUG INEFFECTIVE [None]
  - HAEMOGLOBIN DECREASED [None]
  - HEPATIC FUNCTION ABNORMAL [None]
  - MULTI-ORGAN FAILURE [None]
  - OEDEMA [None]
  - PLATELET COUNT DECREASED [None]
  - PULMONARY OEDEMA [None]
  - PYREXIA [None]
  - RENAL DISORDER [None]
  - SUDDEN DEATH [None]
  - TUMOUR LYSIS SYNDROME [None]
  - WHITE BLOOD CELL COUNT DECREASED [None]
